FAERS Safety Report 6697398-0 (Version None)
Quarter: 2010Q2

REPORT INFORMATION
  Report Type: 
  Country: None (occurrence: None)
  Receive Date: 20100426
  Receipt Date: 20100419
  Transmission Date: 20101027
  Serious: Yes (Other)
  Sender: FDA-Public Use
  Company Number: US-AMGEN-KDL407920

PATIENT
  Sex: Female
  Weight: 99.9 kg

DRUGS (11)
  1. PROCRIT [Suspect]
     Indication: ANAEMIA
     Route: 058
     Dates: start: 20100416
  2. DIOVAN [Concomitant]
  3. ERGOCALCIFEROL [Concomitant]
  4. FERROUS SULFATE TAB [Concomitant]
  5. FUROSEMIDE [Concomitant]
  6. NEXIUM [Concomitant]
  7. NITROGLYCERIN [Concomitant]
  8. NOVOLOG [Concomitant]
     Route: 058
  9. PERIACTIN [Concomitant]
  10. ROCALTROL [Concomitant]
  11. SPIRONOLACTONE [Concomitant]

REACTIONS (4)
  - EYE SWELLING [None]
  - LIP SWELLING [None]
  - PRURITUS [None]
  - RASH [None]
